FAERS Safety Report 10257168 (Version 3)
Quarter: 2014Q3

REPORT INFORMATION
  Report Type: Spontaneous
  Country: GR (occurrence: GR)
  Receive Date: 20140625
  Receipt Date: 20140714
  Transmission Date: 20150326
  Serious: Yes (Other)
  Sender: FDA-Public Use
  Company Number: GR-ROCHE-1418532

PATIENT
  Sex: Female
  Weight: 60 kg

DRUGS (6)
  1. EPOETIN ALFA [Concomitant]
     Active Substance: ERYTHROPOIETIN
  2. MIRCERA [Suspect]
     Active Substance: PEGZEREPOETIN ALFA
     Indication: NEPHROGENIC ANAEMIA
     Route: 042
     Dates: start: 200805, end: 200807
  3. MIRCERA [Suspect]
     Active Substance: PEGZEREPOETIN ALFA
     Route: 065
     Dates: start: 201405, end: 20140509
  4. FOLIC ACID. [Concomitant]
     Active Substance: FOLIC ACID
  5. VITAMIN B12 [Concomitant]
     Active Substance: CYANOCOBALAMIN
     Route: 065
  6. ABSEAMED [Suspect]
     Active Substance: ERYTHROPOIETIN
     Indication: PRODUCT USED FOR UNKNOWN INDICATION
     Route: 065
     Dates: start: 200808, end: 201406

REACTIONS (2)
  - Bone marrow failure [Unknown]
  - Treatment failure [Unknown]
